FAERS Safety Report 7277826-2 (Version None)
Quarter: 2011Q1

REPORT INFORMATION
  Report Type: 
  Country: None (occurrence: None)
  Receive Date: 20110207
  Receipt Date: 20110125
  Transmission Date: 20110831
  Serious: Yes (Hospitalization)
  Sender: FDA-Public Use
  Company Number: US-ACTELION-A-NJ2010-35358

PATIENT

DRUGS (5)
  1. TRACLEER [Suspect]
     Indication: PULMONARY ARTERIAL HYPERTENSION
     Dosage: UNK
     Route: 048
  2. COUMADIN [Concomitant]
  3. TRACLEER [Suspect]
     Dosage: 62.5 MG, UNK
     Route: 048
     Dates: start: 20080813, end: 20080101
  4. TRACLEER [Suspect]
     Dosage: 62.5 MG, UNK
     Route: 048
     Dates: start: 20081008
  5. TRACLEER [Suspect]
     Dosage: 125 MG, UNK
     Route: 048
     Dates: start: 20080101, end: 20081007

REACTIONS (8)
  - PULMONARY ARTERIAL HYPERTENSION [None]
  - CHRONIC OBSTRUCTIVE PULMONARY DISEASE [None]
  - ATRIAL FIBRILLATION [None]
  - BRONCHITIS [None]
  - PELVIC FRACTURE [None]
  - CARDIAC FAILURE CONGESTIVE [None]
  - FALL [None]
  - PNEUMONIA [None]
